FAERS Safety Report 20614303 (Version 1)
Quarter: 2022Q1

REPORT INFORMATION
  Report Type: Spontaneous
  Country: FR (occurrence: FR)
  Receive Date: 20220320
  Receipt Date: 20220320
  Transmission Date: 20220424
  Serious: Yes (Hospitalization)
  Sender: FDA-Public Use
  Company Number: None

PATIENT
  Age: 76 Year
  Sex: Male
  Weight: 63 kg

DRUGS (35)
  1. CYCLOPHOSPHAMIDE [Suspect]
     Active Substance: CYCLOPHOSPHAMIDE
     Indication: Diffuse large B-cell lymphoma stage IV
     Dosage: 750 MG/M2, 1000 MG, POWDER FOR SOLUTION FOR INJECTION
     Route: 042
     Dates: start: 20210716, end: 20210716
  2. CYCLOPHOSPHAMIDE [Suspect]
     Active Substance: CYCLOPHOSPHAMIDE
     Dosage: 750 MG/M2, 1000 MG, POWDER FOR SOLUTION FOR INJECTION
     Route: 042
     Dates: start: 20210916, end: 20210916
  3. CYCLOPHOSPHAMIDE [Suspect]
     Active Substance: CYCLOPHOSPHAMIDE
     Dosage: 750 MG/M2, 1000 MG, POWDER FOR SOLUTION FOR INJECTION
     Route: 042
     Dates: start: 20211020, end: 20211020
  4. CYCLOPHOSPHAMIDE [Suspect]
     Active Substance: CYCLOPHOSPHAMIDE
     Dosage: 750 MG/M2, 1000 MG, POWDER FOR SOLUTION FOR INJECTION
     Route: 042
     Dates: start: 20210805, end: 20210805
  5. CYCLOPHOSPHAMIDE [Suspect]
     Active Substance: CYCLOPHOSPHAMIDE
     Dosage: 750 MG/M2, 1000 MG, POWDER FOR SOLUTION FOR INJECTION
     Route: 042
     Dates: start: 20210826, end: 20210826
  6. MIANSERIN HYDROCHLORIDE [Suspect]
     Active Substance: MIANSERIN HYDROCHLORIDE
     Indication: Product used for unknown indication
     Route: 048
     Dates: start: 20210916
  7. RITUXIMAB [Suspect]
     Active Substance: RITUXIMAB
     Indication: Diffuse large B-cell lymphoma stage IV
     Dosage: 375 MG/M2, 500 MG, CONCENTRATE FOR SOLUTION FOR INFUSION
     Route: 042
     Dates: start: 20211020, end: 20211020
  8. RITUXIMAB [Suspect]
     Active Substance: RITUXIMAB
     Dosage: 375 MG/M2, 500 MG, CONCENTRATE FOR SOLUTION FOR INFUSION
     Route: 042
     Dates: start: 20210826, end: 20210826
  9. RITUXIMAB [Suspect]
     Active Substance: RITUXIMAB
     Dosage: 375 MG/M2, 500 MG, CONCENTRATE FOR SOLUTION FOR INFUSION
     Route: 042
     Dates: start: 20210916, end: 20210916
  10. RITUXIMAB [Suspect]
     Active Substance: RITUXIMAB
     Dosage: 375 MG/M2, 500 MG, CONCENTRATE FOR SOLUTION FOR INFUSION
     Route: 042
     Dates: start: 20210805, end: 20210805
  11. METHYLPREDNISOLONE HEMISUCCINATE [Suspect]
     Active Substance: METHYLPREDNISOLONE HEMISUCCINATE
     Indication: Diffuse large B-cell lymphoma stage IV
     Dosage: 40 MG/M2, 500 MG, POWDER FOR SOLUTION FOR INJECTION
     Route: 042
     Dates: start: 20210826, end: 20210826
  12. METHYLPREDNISOLONE HEMISUCCINATE [Suspect]
     Active Substance: METHYLPREDNISOLONE HEMISUCCINATE
     Dosage: 40 MG/M2, 500 MG, POWDER FOR SOLUTION FOR INJECTION
     Route: 042
     Dates: start: 20210716, end: 20210716
  13. METHYLPREDNISOLONE HEMISUCCINATE [Suspect]
     Active Substance: METHYLPREDNISOLONE HEMISUCCINATE
     Dosage: 40 MG/M2, 500 MG, POWDER FOR SOLUTION FOR INJECTION
     Route: 042
     Dates: start: 20211020, end: 20211020
  14. METHYLPREDNISOLONE HEMISUCCINATE [Suspect]
     Active Substance: METHYLPREDNISOLONE HEMISUCCINATE
     Dosage: 40 MG/M2, 500 MG, POWDER FOR SOLUTION FOR INJECTION
     Route: 042
     Dates: start: 20210916, end: 20210916
  15. METHYLPREDNISOLONE HEMISUCCINATE [Suspect]
     Active Substance: METHYLPREDNISOLONE HEMISUCCINATE
     Dosage: 40 MG/M2, 500 MG, POWDER FOR SOLUTION FOR INJECTION
     Route: 042
     Dates: start: 20210805, end: 20210805
  16. DOXORUBICIN HYDROCHLORIDE [Suspect]
     Active Substance: DOXORUBICIN HYDROCHLORIDE
     Indication: Diffuse large B-cell lymphoma stage IV
     Dosage: 50 MG/M2, 2 MG/ML, SOLUTION FOR INFUSION
     Route: 042
     Dates: start: 20210805, end: 20210805
  17. DOXORUBICIN HYDROCHLORIDE [Suspect]
     Active Substance: DOXORUBICIN HYDROCHLORIDE
     Dosage: 50 MG/M2, 2 MG/ML, SOLUTION FOR INFUSION
     Route: 042
     Dates: start: 20210916, end: 20210916
  18. DOXORUBICIN HYDROCHLORIDE [Suspect]
     Active Substance: DOXORUBICIN HYDROCHLORIDE
     Dosage: 50 MG/M2, 2 MG/ML, SOLUTION FOR INFUSION
     Route: 042
     Dates: start: 20210826, end: 20210826
  19. DOXORUBICIN HYDROCHLORIDE [Suspect]
     Active Substance: DOXORUBICIN HYDROCHLORIDE
     Dosage: 50 MG/M2, 2 MG/ML, SOLUTION FOR INFUSION
     Route: 042
     Dates: start: 20211020, end: 20211020
  20. DOXORUBICIN HYDROCHLORIDE [Suspect]
     Active Substance: DOXORUBICIN HYDROCHLORIDE
     Dosage: 50 MG/M2, 2 MG/ML, SOLUTION FOR INFUSION
     Route: 042
     Dates: start: 20210716, end: 20210716
  21. DOXORUBICIN HYDROCHLORIDE [Suspect]
     Active Substance: DOXORUBICIN HYDROCHLORIDE
     Dosage: 50 MG/M2, 2 MG/ML, SOLUTION FOR INFUSION
     Route: 042
     Dates: start: 20210826, end: 20210826
  22. VINCRISTINE SULFATE [Suspect]
     Active Substance: VINCRISTINE SULFATE
     Indication: Diffuse large B-cell lymphoma stage IV
     Dosage: 1.011 MG/M2, 2 MG/2 ML, SOLUTION FOR INJECTION
     Route: 042
     Dates: start: 20210826, end: 20210826
  23. VINCRISTINE SULFATE [Suspect]
     Active Substance: VINCRISTINE SULFATE
     Dosage: 1.011 MG/M2, 2 MG/2 ML, SOLUTION FOR INJECTION
     Route: 042
     Dates: start: 20210716, end: 20210716
  24. VINCRISTINE SULFATE [Suspect]
     Active Substance: VINCRISTINE SULFATE
     Dosage: 1.011 MG/M2, 2 MG/2 ML, SOLUTION FOR INJECTION
     Route: 042
     Dates: start: 20210805, end: 20210805
  25. VINCRISTINE SULFATE [Suspect]
     Active Substance: VINCRISTINE SULFATE
     Dosage: 1.011 MG/M2, 2 MG/2 ML, SOLUTION FOR INJECTION
     Route: 042
     Dates: start: 20211020, end: 20211020
  26. VINCRISTINE SULFATE [Suspect]
     Active Substance: VINCRISTINE SULFATE
     Dosage: 1.011 MG/M2, 2 MG/2 ML, SOLUTION FOR INJECTION
     Route: 042
     Dates: start: 20210916, end: 20210916
  27. TRUXIMA [Suspect]
     Active Substance: RITUXIMAB-ABBS
     Indication: Diffuse large B-cell lymphoma stage IV
     Dosage: 375 MG/M2, 500 MG, CONCENTRATE FOR SOLUTION FOR INFUSION
     Route: 042
     Dates: start: 20210716, end: 20210716
  28. ACETAMINOPHEN [Concomitant]
     Active Substance: ACETAMINOPHEN
     Indication: Product used for unknown indication
     Route: 065
  29. FILGRASTIM [Concomitant]
     Active Substance: FILGRASTIM
     Indication: Product used for unknown indication
     Dosage: 30 MU/0.5 ML, SOLUTION FOR INJECTION OR FOR INFUSION IN PRE-FILLED SYRINGE
     Route: 065
  30. PANTOPRAZOLE [Concomitant]
     Active Substance: PANTOPRAZOLE
     Indication: Product used for unknown indication
     Route: 065
  31. VALACYCLOVIR [Concomitant]
     Active Substance: VALACYCLOVIR HYDROCHLORIDE
     Indication: Product used for unknown indication
     Route: 065
  32. ALLOPURINOL [Concomitant]
     Active Substance: ALLOPURINOL
     Indication: Product used for unknown indication
     Route: 065
  33. ERYTHROPOIETIN [Concomitant]
     Active Substance: ERYTHROPOIETIN
     Indication: Product used for unknown indication
     Dosage: 30,000 IU/0.75 ML, SOLUTION FOR INJECTION IN A PRE-FILLED SYRINGE
     Route: 065
  34. BISOPROLOL [Concomitant]
     Active Substance: BISOPROLOL
     Indication: Product used for unknown indication
     Dosage: 2.5 MG, SCORED FILM-COATED TABLET
     Route: 065
  35. POTASSIUM CHLORIDE [Concomitant]
     Active Substance: POTASSIUM CHLORIDE
     Indication: Product used for unknown indication
     Route: 065

REACTIONS (1)
  - Impaired gastric emptying [Not Recovered/Not Resolved]

NARRATIVE: CASE EVENT DATE: 20211109
